FAERS Safety Report 17704699 (Version 5)
Quarter: 2020Q3

REPORT INFORMATION
  Report Type: Spontaneous
  Country: US (occurrence: US)
  Receive Date: 20200424
  Receipt Date: 20200930
  Transmission Date: 20201102
  Serious: No
  Sender: FDA-Public Use
  Company Number: US-SA-2020SA103518

PATIENT

DRUGS (1)
  1. DUPIXENT [Suspect]
     Active Substance: DUPILUMAB
     Indication: ASTHMA
     Dosage: 300 MG, QOW
     Route: 058

REACTIONS (12)
  - Injection site rash [Not Recovered/Not Resolved]
  - Injection site indentation [Unknown]
  - Therapy cessation [Unknown]
  - Migraine [Unknown]
  - Injection site erythema [Unknown]
  - Asthma [Unknown]
  - Nausea [Unknown]
  - Injection site vesicles [Unknown]
  - Injection site discharge [Unknown]
  - Adverse drug reaction [Unknown]
  - Injection site pruritus [Not Recovered/Not Resolved]
  - Injection site scab [Not Recovered/Not Resolved]

NARRATIVE: CASE EVENT DATE: 2020
